FAERS Safety Report 5585903-7 (Version None)
Quarter: 2008Q1

REPORT INFORMATION
  Report Type: 
  Country: None (occurrence: None)
  Receive Date: 20080109
  Receipt Date: 20071214
  Transmission Date: 20080703
  Serious: No
  Sender: FDA-Public Use
  Company Number: US-BOEHRINGER INGELHEIM PHARMACEUTICALS, INC.-2007-BP-25526BP

PATIENT
  Age: 69 Year
  Sex: Male

DRUGS (18)
  1. SPIRIVA [Suspect]
     Indication: CHRONIC OBSTRUCTIVE PULMONARY DISEASE
     Route: 055
     Dates: start: 20070701, end: 20071201
  2. ADVAIR DISKUS 100/50 [Concomitant]
  3. ALBUTEROL [Concomitant]
  4. DICLOFENAC SODIUM [Concomitant]
  5. LASIX [Concomitant]
  6. GABAPENTIN [Concomitant]
  7. POTASSIUM ER [Concomitant]
  8. MICARDIS [Concomitant]
  9. SIMVASTATIN [Concomitant]
  10. COUMADIN [Concomitant]
  11. UROXATRAL [Concomitant]
  12. SULAR [Concomitant]
  13. TOPROL-XL [Concomitant]
  14. TRICOR [Concomitant]
  15. VIT PILL [Concomitant]
  16. TERAZOSIN HCL [Concomitant]
  17. DOXAZOSIN MESYLATE [Concomitant]
  18. ALLOPURINOL [Concomitant]

REACTIONS (1)
  - DRUG INEFFECTIVE [None]
